FAERS Safety Report 12565304 (Version 3)
Quarter: 2016Q3

REPORT INFORMATION
  Report Type: Spontaneous
  Country: US (occurrence: US)
  Receive Date: 20160718
  Receipt Date: 20160822
  Transmission Date: 20161109
  Serious: No
  Sender: FDA-Public Use
  Company Number: PHEH2016US017446

PATIENT
  Age: 48 Year
  Sex: Female

DRUGS (1)
  1. SANDOSTATIN LAR DEPOT [Suspect]
     Active Substance: OCTREOTIDE ACETATE
     Indication: CARCINOID TUMOUR
     Dosage: 60 MG, EVERY 3 WEEK
     Route: 030
     Dates: start: 20140401

REACTIONS (6)
  - Injection site warmth [Unknown]
  - Chills [Unknown]
  - Injection site swelling [Unknown]
  - Needle issue [Recovered/Resolved with Sequelae]
  - Inappropriate schedule of drug administration [Unknown]
  - Injection site erythema [Unknown]

NARRATIVE: CASE EVENT DATE: 20160524
